FAERS Safety Report 23322108 (Version 2)
Quarter: 2023Q4

REPORT INFORMATION
  Report Type: Spontaneous
  Country: JP (occurrence: None)
  Receive Date: 20231220
  Receipt Date: 20231229
  Transmission Date: 20240109
  Serious: Yes (Hospitalization)
  Sender: FDA-Public Use
  Company Number: 2023A285616

PATIENT
  Sex: Female

DRUGS (4)
  1. EVUSHELD [Suspect]
     Active Substance: CILGAVIMAB\TIXAGEVIMAB
     Indication: COVID-19 prophylaxis
     Dosage: 600 MG
     Route: 030
     Dates: start: 202301, end: 202301
  2. RITUXIMAB [Suspect]
     Active Substance: RITUXIMAB
     Indication: B-cell lymphoma
     Dosage: DOSE UNKNOWN
     Route: 065
     Dates: start: 2021, end: 2021
  3. RITUXIMAB [Suspect]
     Active Substance: RITUXIMAB
     Indication: B-cell lymphoma
     Dosage: DOSE UNKNOWN
     Route: 065
     Dates: start: 202109, end: 20230616
  4. BENDAMUSTINE HYDROCHLORIDE [Suspect]
     Active Substance: BENDAMUSTINE HYDROCHLORIDE
     Indication: B-cell lymphoma
     Dates: start: 2021, end: 2021

REACTIONS (3)
  - COVID-19 pneumonia [Not Recovered/Not Resolved]
  - Decreased immune responsiveness [Unknown]
  - Drug ineffective [Unknown]

NARRATIVE: CASE EVENT DATE: 20230801
